FAERS Safety Report 9868104 (Version 2)
Quarter: 2014Q1

REPORT INFORMATION
  Report Type: Spontaneous
  Country: IT (occurrence: IT)
  Receive Date: 20140204
  Receipt Date: 20140307
  Transmission Date: 20141002
  Serious: Yes (Other)
  Sender: FDA-Public Use
  Company Number: IT-WATSON-2014-01315

PATIENT
  Age: 44 Year
  Sex: Female

DRUGS (1)
  1. RISPERIDONE ACTAVIS [Suspect]
     Indication: PSYCHOTIC DISORDER
     Dosage: 2 MG, DAILY
     Route: 048
     Dates: start: 20131101, end: 20131215

REACTIONS (4)
  - Anxiety disorder [Recovering/Resolving]
  - Product measured potency issue [Recovering/Resolving]
  - Drug effect decreased [Recovering/Resolving]
  - Product substitution issue [Recovering/Resolving]
